FAERS Safety Report 5594301-1 (Version None)
Quarter: 2008Q1

REPORT INFORMATION
  Report Type: 
  Country: None (occurrence: None)
  Receive Date: 20080117
  Receipt Date: 20080109
  Transmission Date: 20080703
  Serious: Yes (Other)
  Sender: FDA-Public Use
  Company Number: PHEH2008US00684

PATIENT

DRUGS (1)
  1. EXELON PATCH [Suspect]

REACTIONS (1)
  - PSYCHOTIC DISORDER [None]
